FAERS Safety Report 15715294 (Version 2)
Quarter: 2019Q1

REPORT INFORMATION
  Report Type: Report from Study
  Country: GR (occurrence: GR)
  Receive Date: 20181212
  Receipt Date: 20190122
  Transmission Date: 20190417
  Serious: Yes (Death, Hospitalization)
  Sender: FDA-Public Use
  Company Number: GR-EISAI MEDICAL RESEARCH-EC-2018-049045

PATIENT
  Age: 60 Year
  Sex: Male
  Weight: 100 kg

DRUGS (7)
  1. LASIX [Concomitant]
     Active Substance: FUROSEMIDE
  2. ZYLORIC [Concomitant]
     Active Substance: ALLOPURINOL
  3. CARVEPEN [Concomitant]
     Active Substance: CARVEDILOL
  4. CATAPRESAN-CLONIDINE [Concomitant]
  5. EFEXOR [Concomitant]
     Active Substance: VENLAFAXINE HYDROCHLORIDE
  6. LENVATINIB [Suspect]
     Active Substance: LENVATINIB
     Indication: RENAL CANCER METASTATIC
     Route: 048
     Dates: start: 20180427, end: 20181127
  7. EVEROLIMUS. [Suspect]
     Active Substance: EVEROLIMUS
     Indication: RENAL CANCER METASTATIC
     Route: 048
     Dates: start: 20180427, end: 20181127

REACTIONS (1)
  - Pericardial effusion [Fatal]

NARRATIVE: CASE EVENT DATE: 20181206
